FAERS Safety Report 22135821 (Version 1)
Quarter: 2023Q1

REPORT INFORMATION
  Report Type: Spontaneous
  Country: US (occurrence: None)
  Receive Date: 20230323
  Receipt Date: 20230323
  Transmission Date: 20230418
  Serious: No
  Sender: FDA-Public Use
  Company Number: None

PATIENT
  Age: 87 Year
  Sex: Male
  Weight: 90 kg

DRUGS (4)
  1. DEXLANSOPRAZOLE [Suspect]
     Active Substance: DEXLANSOPRAZOLE
     Indication: Gastrooesophageal reflux disease
     Dosage: FREQUENCY : DAILY;?
     Route: 048
     Dates: start: 20200803
  2. DEXILANT [Concomitant]
     Active Substance: DEXLANSOPRAZOLE
     Dates: start: 20200802
  3. dexlansoprazole twi mfr [Concomitant]
     Dates: start: 20221114, end: 20230301
  4. dexalansoprazole par [Concomitant]
     Dates: start: 20230301

REACTIONS (5)
  - Nausea [None]
  - Dyspepsia [None]
  - Decreased appetite [None]
  - Abdominal distension [None]
  - Weight decreased [None]

NARRATIVE: CASE EVENT DATE: 20230301
